FAERS Safety Report 4596819-7 (Version None)
Quarter: 2005Q1

REPORT INFORMATION
  Report Type: 
  Country: None (occurrence: None)
  Receive Date: 20050228
  Receipt Date: 20050215
  Transmission Date: 20050727
  Serious: Yes (Disabling)
  Sender: FDA-Public Use
  Company Number: 2005032187

PATIENT
  Age: 43 Year
  Sex: Female

DRUGS (2)
  1. LYRICA [Suspect]
     Indication: BACK PAIN
     Dosage: 400 MG 9200 MG, 2 IN 1 D), ORAL
     Route: 048
     Dates: start: 20041025, end: 20050125
  2. CODEINE PHOSPHATE AND ACETAMINOPHEN [Concomitant]

REACTIONS (4)
  - ABDOMINAL DISTENSION [None]
  - ATHETOSIS [None]
  - MENTAL IMPAIRMENT [None]
  - TREMOR [None]
